FAERS Safety Report 6966789-2 (Version None)
Quarter: 2010Q3

REPORT INFORMATION
  Report Type: 
  Country: None (occurrence: None)
  Receive Date: 20100906
  Receipt Date: 20100823
  Transmission Date: 20110219
  Serious: Yes (Hospitalization)
  Sender: FDA-Public Use
  Company Number: PHEH2009US18510

PATIENT
  Sex: Male

DRUGS (17)
  1. EXTAVIA [Suspect]
     Indication: MULTIPLE SCLEROSIS
     Dosage: 0.25 UNK, EVERY OTHER DAY
     Route: 058
     Dates: start: 20091215
  2. POTASSIUM CHLORIDE [Concomitant]
     Dosage: 10 BID
  3. ZETIA [Concomitant]
     Dosage: 10 MG, QOD
  4. SIMVASTATIN [Concomitant]
     Dosage: 40 MG, QOD
  5. FLUOXETINE [Concomitant]
     Dosage: 10 MG, QD
  6. FUROSEMIDE [Concomitant]
     Dosage: 40 MG, QD
  7. AMLODIPINE BESYLATE AND BENAZEPRIL HCL [Concomitant]
     Dosage: 5/20 QD
  8. METANX [Concomitant]
     Dosage: 1 DF, QD
  9. BACLOFEN [Concomitant]
     Dosage: 20 MG, QID
  10. PROTONIX [Concomitant]
     Dosage: 40 MG, QD
  11. PROVIGIL [Concomitant]
     Dosage: 200 MG, BID
  12. ASPIRIN [Concomitant]
     Dosage: 325 MG, QD
  13. FISH OIL [Concomitant]
     Dosage: 1200 MG, TID
  14. CALCIUM WITH VITAMIN D [Concomitant]
     Dosage: 500 MG, QD
  15. OXYGEN THERAPY [Concomitant]
     Dosage: 20 L
  16. ADVAIR DISKUS 100/50 [Concomitant]
     Dosage: 230/21 QHS
  17. SPIRIVA [Concomitant]
     Dosage: 2 PUFFS QD

REACTIONS (5)
  - COLITIS [None]
  - INJECTION SITE MASS [None]
  - MUSCULOSKELETAL STIFFNESS [None]
  - PAIN [None]
  - SENSORY DISTURBANCE [None]
